FAERS Safety Report 7693930-9 (Version None)
Quarter: 2011Q3

REPORT INFORMATION
  Report Type: 
  Country: None (occurrence: None)
  Receive Date: 20110819
  Receipt Date: 20110809
  Transmission Date: 20111222
  Serious: Yes (Hospitalization)
  Sender: FDA-Public Use
  Company Number: HU-SANOFI-AVENTIS-2011SA044169

PATIENT
  Age: 90 Year
  Sex: Male
  Weight: 85 kg

DRUGS (8)
  1. DRONEDARONE HCL [Suspect]
     Indication: ATRIAL FIBRILLATION
     Route: 048
     Dates: start: 20110202
  2. FUROSEMIDE [Concomitant]
     Route: 065
  3. BISOPROLOL FUMARATE [Concomitant]
     Route: 065
  4. RAMIPRIL [Concomitant]
     Route: 065
  5. ATORVASTATIN [Concomitant]
     Route: 065
  6. BISOPROLOL FUMARATE [Concomitant]
     Route: 065
     Dates: start: 20110217
  7. DIGOXIN [Concomitant]
     Route: 065
  8. ACENOCOUMAROL [Concomitant]
     Route: 065

REACTIONS (1)
  - CARDIAC FAILURE [None]
